FAERS Safety Report 5604241-7 (Version None)
Quarter: 2008Q1

REPORT INFORMATION
  Report Type: 
  Country: None (occurrence: None)
  Receive Date: 20080128
  Receipt Date: 20080115
  Transmission Date: 20080703
  Serious: Yes (Other)
  Sender: FDA-Public Use
  Company Number: US-ELI_LILLY_AND_COMPANY-US200801003026

PATIENT
  Sex: Female
  Weight: 25.85 kg

DRUGS (2)
  1. FORTEO [Suspect]
     Indication: OSTEOPOROSIS
     Dates: start: 20060601
  2. POTASSIUM CHLORIDE [Concomitant]

REACTIONS (1)
  - WEIGHT DECREASED [None]
